FAERS Safety Report 18226274 (Version 2)
Quarter: 2021Q3

REPORT INFORMATION
  Report Type: Spontaneous
  Country: US (occurrence: US)
  Receive Date: 20200903
  Receipt Date: 20210901
  Transmission Date: 20211014
  Serious: No
  Sender: FDA-Public Use
  Company Number: US-AUROBINDO-AUR-APL-2020-016525

PATIENT
  Age: 51 Year
  Sex: Female
  Weight: 68 kg

DRUGS (5)
  1. OXYCODONE AND ACETAMINOPHEN [Suspect]
     Active Substance: ACETAMINOPHEN\OXYCODONE HYDROCHLORIDE
     Dosage: 1 DOSAGE FORM, ONCE A DAY IN THE MORNING
     Route: 065
     Dates: start: 20200326
  2. OXYCODONE AND ACETAMINOPHEN [Suspect]
     Active Substance: ACETAMINOPHEN\OXYCODONE HYDROCHLORIDE
     Dosage: 3 DOSAGE FORM, DAILY
     Route: 065
     Dates: start: 20200325
  3. OXYCODONE AND ACETAMINOPHEN [Suspect]
     Active Substance: ACETAMINOPHEN\OXYCODONE HYDROCHLORIDE
     Indication: PAIN
     Dosage: 3 DOSAGE FORM, DAILY
     Route: 065
  4. OXYCODONE AND ACETAMINOPHEN [Suspect]
     Active Substance: ACETAMINOPHEN\OXYCODONE HYDROCHLORIDE
     Dosage: UNK
     Route: 065
     Dates: start: 20200405, end: 20200406
  5. OXYCODONE AND ACETAMINOPHEN [Suspect]
     Active Substance: ACETAMINOPHEN\OXYCODONE HYDROCHLORIDE
     Dosage: 3 DOSAGE FORM, DAILY
     Route: 065
     Dates: start: 20200324

REACTIONS (19)
  - Nasopharyngitis [Recovering/Resolving]
  - Hyperhidrosis [Recovering/Resolving]
  - Product quality issue [Unknown]
  - Heart rate increased [Recovering/Resolving]
  - Insomnia [Recovering/Resolving]
  - Crying [Recovering/Resolving]
  - Product physical issue [Unknown]
  - Wrong technique in product usage process [Unknown]
  - Feeling abnormal [Recovering/Resolving]
  - Nausea [Recovering/Resolving]
  - Mental status changes [Recovering/Resolving]
  - Product colour issue [Unknown]
  - Illness [Recovering/Resolving]
  - Amnesia [Recovering/Resolving]
  - Drug ineffective [Unknown]
  - Abdominal pain upper [Recovering/Resolving]
  - Nightmare [Recovering/Resolving]
  - Personality change [Recovering/Resolving]
  - Disturbance in attention [Recovering/Resolving]

NARRATIVE: CASE EVENT DATE: 20200324
